FAERS Safety Report 18975788 (Version 1)
Quarter: 2021Q1

REPORT INFORMATION
  Report Type: Spontaneous
  Country: US (occurrence: US)
  Receive Date: 20210306
  Receipt Date: 20210306
  Transmission Date: 20210420
  Serious: No
  Sender: FDA-Public Use
  Company Number: NVSC2021US050047

PATIENT
  Age: 68 Year
  Sex: Female

DRUGS (1)
  1. PIQRAY [Suspect]
     Active Substance: ALPELISIB
     Indication: PRODUCT USED FOR UNKNOWN INDICATION
     Dosage: UNK
     Route: 065
     Dates: start: 20201201

REACTIONS (5)
  - Decreased appetite [Unknown]
  - Abdominal pain upper [Unknown]
  - Fatigue [Unknown]
  - Nausea [Unknown]
  - Rash [Unknown]
